FAERS Safety Report 24356756 (Version 1)
Quarter: 2024Q3

REPORT INFORMATION
  Report Type: Spontaneous
  Country: IN (occurrence: IN)
  Receive Date: 20240924
  Receipt Date: 20240924
  Transmission Date: 20241016
  Serious: Yes (Hospitalization)
  Sender: ACCORD
  Company Number: IN-Accord-447024

PATIENT
  Age: 62 Year
  Sex: Male

DRUGS (5)
  1. ROSUVASTATIN [Suspect]
     Active Substance: ROSUVASTATIN\ROSUVASTATIN CALCIUM
     Indication: Atherosclerosis prophylaxis
     Dosage: ROSUVASTATIN 40MG ONCE DAILY
  2. ASPIRIN [Concomitant]
     Active Substance: ASPIRIN
     Dosage: ASPIRIN 75 MG
  3. TICAGRELOR [Concomitant]
     Active Substance: TICAGRELOR
     Dosage: TICAGRELOR 90 MG (BD)
  4. LINAGLIPTIN [Concomitant]
     Active Substance: LINAGLIPTIN
     Dosage: LINAGLIPTIN 2.5MG
  5. METOPROLOL [Concomitant]
     Active Substance: METOPROLOL
     Dosage: METOPROLOL 25MG (BD)

REACTIONS (6)
  - Myopathy [Recovered/Resolved]
  - Metabolic acidosis [Recovered/Resolved]
  - Acute kidney injury [Recovered/Resolved]
  - Liver injury [Recovered/Resolved]
  - Ascites [Unknown]
  - Pleural effusion [Unknown]
